FAERS Safety Report 4357833-X (Version None)
Quarter: 2004Q2

REPORT INFORMATION
  Report Type: 
  Country: None (occurrence: None)
  Receive Date: 20040512
  Receipt Date: 20040427
  Transmission Date: 20050107
  Serious: Yes (Hospitalization)
  Sender: FDA-Public Use
  Company Number: US-JNJFOC-20040405959

PATIENT
  Age: 68 Year
  Sex: Female
  Weight: 65.7716 kg

DRUGS (8)
  1. INFLIXIMAB (INFLIXIMAB, RECOMBINANT) LYOPHILIZED POWDER [Suspect]
     Indication: RHEUMATOID ARTHRITIS
     Route: 042
     Dates: start: 20020620
  2. METHOTREXATE [Concomitant]
  3. PREDNISONE [Concomitant]
  4. VIOXX [Concomitant]
  5. NEXIUM [Concomitant]
  6. LEUCOVORIN CALCIUM [Concomitant]
  7. TRIAMTERENE (TRIAMTERENE) [Concomitant]
  8. ADVAIR (SERETIDE MITE) [Concomitant]

REACTIONS (3)
  - ENDOMETRIAL CANCER [None]
  - POSTMENOPAUSAL HAEMORRHAGE [None]
  - WOUND DEHISCENCE [None]
